FAERS Safety Report 23307357 (Version 1)
Quarter: 2023Q4

REPORT INFORMATION
  Report Type: Spontaneous
  Country: US (occurrence: US)
  Receive Date: 20231218
  Receipt Date: 20231218
  Transmission Date: 20240109
  Serious: Yes (Hospitalization)
  Sender: FDA-Public Use
  Company Number: US-REGENERON PHARMACEUTICALS, INC.-2023-152228

PATIENT
  Sex: Male

DRUGS (1)
  1. EYLEA [Suspect]
     Active Substance: AFLIBERCEPT
     Indication: Macular degeneration
     Dosage: UNK, EVERY FOUR WEEKS, FORMULATION: UNKNOWN
     Dates: start: 20230724

REACTIONS (4)
  - Haematoma [Unknown]
  - Hypoaesthesia [Unknown]
  - Muscular weakness [Recovering/Resolving]
  - COVID-19 [Unknown]

NARRATIVE: CASE EVENT DATE: 20230101
